FAERS Safety Report 9773866 (Version 1)
Quarter: 2013Q4

REPORT INFORMATION
  Report Type: Spontaneous
  Country: US (occurrence: US)
  Receive Date: 20131220
  Receipt Date: 20131220
  Transmission Date: 20140711
  Serious: Yes (Death)
  Sender: FDA-Public Use
  Company Number: US-ROCHE-1316981

PATIENT
  Sex: Female

DRUGS (5)
  1. KADCYLA [Suspect]
     Indication: BREAST CANCER METASTATIC
     Route: 065
  2. COUMADIN [Concomitant]
  3. LORAZEPAM [Concomitant]
  4. OXYCODONE [Concomitant]
  5. OXYCODONE CR [Concomitant]

REACTIONS (1)
  - Haemorrhage intracranial [Fatal]
